FAERS Safety Report 17971144 (Version 1)
Quarter: 2020Q3

REPORT INFORMATION
  Report Type: Spontaneous
  Country: US (occurrence: US)
  Receive Date: 20200702
  Receipt Date: 20200702
  Transmission Date: 20201103
  Serious: No
  Sender: FDA-Public Use
  Company Number: US-GW PHARMA-202006USGW02324

PATIENT

DRUGS (2)
  1. CLOBAZAM. [Suspect]
     Active Substance: CLOBAZAM
     Indication: PRODUCT USED FOR UNKNOWN INDICATION
     Dosage: UNK
     Route: 065
  2. EPIDIOLEX [Suspect]
     Active Substance: CANNABIDIOL
     Indication: LENNOX-GASTAUT SYNDROME
     Dosage: 90 MILLIGRAM, BID
     Route: 048
     Dates: start: 20200605

REACTIONS (3)
  - Somnolence [Unknown]
  - Mood swings [Unknown]
  - Emotional disorder [Unknown]

NARRATIVE: CASE EVENT DATE: 20200606
